FAERS Safety Report 9846781 (Version 2)
Quarter: 2014Q1

REPORT INFORMATION
  Report Type: Spontaneous
  Country: BR (occurrence: BR)
  Receive Date: 20140127
  Receipt Date: 20140203
  Transmission Date: 20141002
  Serious: Yes (Other)
  Sender: FDA-Public Use
  Company Number: PHHY2014BR007461

PATIENT
  Age: 56 Year
  Sex: Female
  Weight: 88 kg

DRUGS (7)
  1. MIRTAZAPINE SANDOZ [Suspect]
     Indication: INSOMNIA
     Dosage: 22.5 MG, QD
     Route: 048
  2. MIRTAZAPINE SANDOZ [Suspect]
     Indication: DEPRESSION
  3. MIRTAZAPINE SANDOZ [Suspect]
     Indication: PANIC DISORDER
  4. SERTRALINE [Concomitant]
     Indication: DEPRESSION
     Dosage: 1 DF
     Route: 048
  5. RIVOTRIL [Concomitant]
     Indication: PANIC DISORDER
     Dosage: 1 DF
     Route: 048
  6. LOSARTAN [Concomitant]
     Indication: HYPERTENSION
     Dosage: 1 DF, Q12H
     Route: 048
  7. AMLODIPINE [Concomitant]
     Indication: HYPERTENSION
     Dosage: 1 DF, QD
     Route: 048

REACTIONS (1)
  - Vision blurred [Recovering/Resolving]
